FAERS Safety Report 9254824 (Version 2)
Quarter: 2013Q2

REPORT INFORMATION
  Report Type: Spontaneous
  Country: US (occurrence: US)
  Receive Date: 20130425
  Receipt Date: 20130607
  Transmission Date: 20140414
  Serious: No
  Sender: FDA-Public Use
  Company Number: US-VERTEX PHARMACEUTICALS INC.-2013-005340

PATIENT
  Sex: Female
  Weight: 109 kg

DRUGS (8)
  1. INCIVEK [Suspect]
     Indication: HEPATITIS C
     Dosage: 750 MG, TID
     Route: 048
     Dates: start: 20130412
  2. PEGASYS [Suspect]
     Indication: HEPATITIS C
     Dosage: 180 ?G, QW
     Route: 058
     Dates: start: 20130412
  3. RIBAPAK [Suspect]
     Indication: HEPATITIS C
     Dosage: 1 DF, BID
     Route: 048
     Dates: start: 20130412
  4. ALEVE [Concomitant]
     Indication: ARTHRALGIA
     Dosage: 220 MG, PRN
  5. LOTREL [Concomitant]
     Dosage: 1 DF, QD
     Route: 048
  6. VIVELLE [Concomitant]
     Dosage: 1 DF, EVERY WEEK
  7. MOVIPREP [Concomitant]
     Dosage: 1 DF, BID
     Route: 048
  8. DULCOLAX [Concomitant]
     Dosage: 10 MG AS DIRECTED FOR ONE DAY
     Route: 048

REACTIONS (8)
  - Decreased appetite [Unknown]
  - Injection site bruising [Unknown]
  - Weight decreased [Unknown]
  - Fatigue [Unknown]
  - Local swelling [Recovered/Resolved]
  - Anaemia [Unknown]
  - Anal pruritus [Unknown]
  - Nausea [Unknown]
